FAERS Safety Report 4456971-0 (Version None)
Quarter: 2004Q3

REPORT INFORMATION
  Report Type: 
  Country: None (occurrence: None)
  Receive Date: 20040921
  Receipt Date: 20040913
  Transmission Date: 20050211
  Serious: Yes (Death, Hospitalization)
  Sender: FDA-Public Use
  Company Number: US-JNJFOC-20040903489

PATIENT
  Age: 37 Hour
  Sex: Male

DRUGS (4)
  1. ACETAMINOPHEN [Suspect]
     Indication: ARTHRALGIA
     Dosage: 2 TABLETS EVERY 2-3 HOURS FOR 1 WEEK
  2. ACETAMINOPHEN [Suspect]
     Indication: INTENTIONAL MISUSE
     Dosage: 2 TABLETS EVERY 2-3 HOURS FOR 1 WEEK
  3. ETHANOL (ETHANOL) [Suspect]
     Indication: INTENTIONAL MISUSE
     Dosage: 2-3 BEERS PER DAY
  4. MUTIPLE VITAMIN WITH GINSENG AND IRON (COMBINATIONS OF VITAMINS) [Suspect]
     Indication: DRUG USE FOR UNKNOWN INDICATION
     Dosage: 2 TABLETS IN 1 DAY

REACTIONS (24)
  - ALCOHOL USE [None]
  - ANION GAP INCREASED [None]
  - BLOOD BICARBONATE DECREASED [None]
  - BLOOD CHLORIDE DECREASED [None]
  - BLOOD GLUCOSE DECREASED [None]
  - BLOOD SODIUM DECREASED [None]
  - COAGULOPATHY [None]
  - FATTY LIVER ALCOHOLIC [None]
  - GASTRITIS [None]
  - GASTROINTESTINAL NECROSIS [None]
  - GENERAL PHYSICAL HEALTH DETERIORATION [None]
  - HEPATIC NECROSIS [None]
  - HYPOTENSION [None]
  - INTERNATIONAL NORMALISED RATIO INCREASED [None]
  - LARGE INTESTINE PERFORATION [None]
  - LIPASE INCREASED [None]
  - MULTIPLE DRUG OVERDOSE [None]
  - NECROSIS ISCHAEMIC [None]
  - PERITONITIS [None]
  - RENAL FAILURE [None]
  - RESPIRATORY FAILURE [None]
  - RESPIRATORY RATE INCREASED [None]
  - TACHYCARDIA [None]
  - WHITE BLOOD CELL COUNT INCREASED [None]
